FAERS Safety Report 23221065 (Version 1)
Quarter: 2023Q4

REPORT INFORMATION
  Report Type: Report from Study
  Country: NL (occurrence: NL)
  Receive Date: 20231123
  Receipt Date: 20231123
  Transmission Date: 20240110
  Serious: Yes (Hospitalization)
  Sender: FDA-Public Use
  Company Number: NL-AstraZeneca-2023A261393

PATIENT
  Sex: Male
  Weight: 7.3 kg

DRUGS (5)
  1. SYNAGIS [Suspect]
     Active Substance: PALIVIZUMAB
     Indication: Premature baby
     Route: 030
     Dates: start: 20230914
  2. ALBUTEROL [Concomitant]
     Active Substance: ALBUTEROL
     Indication: Product used for unknown indication
     Dosage: 100MCG/D 200
     Route: 055
  3. PREDNISOLONE [Concomitant]
     Active Substance: PREDNISOLONE
     Indication: Product used for unknown indication
  4. LACTULOSESTROOP [Concomitant]
     Indication: Product used for unknown indication
  5. FERROCHL [Concomitant]
     Indication: Product used for unknown indication

REACTIONS (1)
  - Oxygen saturation decreased [Unknown]
